FAERS Safety Report 20453704 (Version 1)
Quarter: 2022Q1

REPORT INFORMATION
  Report Type: Spontaneous
  Country: US (occurrence: US)
  Receive Date: 20220210
  Receipt Date: 20220210
  Transmission Date: 20220424
  Serious: No
  Sender: FDA-Public Use
  Company Number: US-VIIV HEALTHCARE LIMITED-US2022017738

PATIENT
  Age: 38 Year
  Sex: Male

DRUGS (3)
  1. CABENUVA [Suspect]
     Active Substance: CABOTEGRAVIR\RILPIVIRINE
     Indication: HIV infection
     Dosage: UNK UNK, Z, 600MG/900MG KIT: 600MG CABOTEGRAVIR + 900MG RILPIVIRINE INJECTED ONCE PER MONTH
     Route: 030
     Dates: start: 20211215, end: 20220112
  2. CABENUVA [Suspect]
     Active Substance: CABOTEGRAVIR\RILPIVIRINE
  3. CABENUVA [Suspect]
     Active Substance: CABOTEGRAVIR\RILPIVIRINE

REACTIONS (3)
  - Injection site reaction [Unknown]
  - Injection site pain [Not Recovered/Not Resolved]
  - Impaired work ability [Unknown]

NARRATIVE: CASE EVENT DATE: 20220112
